FAERS Safety Report 6115511-0 (Version None)
Quarter: 2009Q1

REPORT INFORMATION
  Report Type: 
  Country: None (occurrence: None)
  Receive Date: 20090313
  Receipt Date: 20090112
  Transmission Date: 20090719
  Serious: Yes (Other)
  Sender: FDA-Public Use
  Company Number: BR-PFIZER INC-2008157204

PATIENT

DRUGS (4)
  1. FRONTAL [Suspect]
     Dosage: 1 MG, UNK
     Route: 048
     Dates: start: 20020101
  2. FRONTAL [Suspect]
     Dosage: 2 MG, 2X/DAY
     Route: 048
  3. FRONTAL XR [Suspect]
     Dosage: 2 MG, 2X/DAY
     Route: 048
  4. ALL OTHER THERAPEUTIC PRODUCTS [Concomitant]

REACTIONS (12)
  - ABNORMAL BEHAVIOUR [None]
  - ANXIETY [None]
  - DEPRESSION [None]
  - HYPERCHLORHYDRIA [None]
  - MENTAL DISORDER [None]
  - MIDDLE INSOMNIA [None]
  - NERVOUSNESS [None]
  - OBSTRUCTION GASTRIC [None]
  - SURGERY [None]
  - SWELLING [None]
  - VOMITING [None]
  - WEIGHT INCREASED [None]
